FAERS Safety Report 4994780-4 (Version None)
Quarter: 2006Q1

REPORT INFORMATION
  Report Type: 
  Country: None (occurrence: None)
  Receive Date: 20060314
  Receipt Date: 20060103
  Transmission Date: 20060701
  Serious: Yes (Other)
  Sender: FDA-Public Use
  Company Number: 200610079BCC

PATIENT
  Age: 85 Year
  Sex: Male
  Weight: 80.7403 kg

DRUGS (3)
  1. ALEVE (CAPLET) [Suspect]
     Indication: PAIN IN EXTREMITY
     Dosage: 440 MG, TOTAL DAILY, ORAL
     Route: 048
  2. ALEVE (CAPLET) [Suspect]
  3. HIGH BLOOD PRESSURE MEDICATION [Concomitant]

REACTIONS (1)
  - RECTAL HAEMORRHAGE [None]
